FAERS Safety Report 8836686 (Version 1)
Quarter: 2012Q4

REPORT INFORMATION
  Report Type: Spontaneous
  Country: TW (occurrence: None)
  Receive Date: 20121009
  Receipt Date: 20121009
  Transmission Date: 20130627
  Serious: Yes (Hospitalization, Other)
  Sender: FDA-Public Use
  Company Number: IMP_06015_2012

PATIENT
  Age: 30 Year
  Sex: Female

DRUGS (4)
  1. BUPROPION [Suspect]
     Indication: PRODUCT USED FOR UNKNOWN INDICATION
     Dosage: 1 month^s prescription (not the prescribed dose
  2. VENLAFAXINE [Suspect]
     Indication: PRODUCT USED FOR UNKNOWN INDICATION
     Dosage: 1 month^s prescription (not the prescribed dose
  3. LORAZEPAM (LORAZEPAM) [Suspect]
     Indication: PRODUCT USED FOR UNKNOWN INDICATION
     Dosage: 1 month^s prescription (not the prescribed dose
  4. LORAZEPAM (LORAZEPAM) [Suspect]
     Indication: PRODUCT USED FOR UNKNOWN INDICATION

REACTIONS (29)
  - Intentional overdose [None]
  - Suicide attempt [None]
  - Myoclonus [None]
  - Electrocardiogram QRS complex prolonged [None]
  - Somnolence [None]
  - Confusional state [None]
  - Respiratory distress [None]
  - Leukocytosis [None]
  - Blood pressure diastolic increased [None]
  - Blood pressure decreased [None]
  - Tachycardia [None]
  - Blood creatine phosphokinase increased [None]
  - Blood creatinine increased [None]
  - Serotonin syndrome [None]
  - Agitation [None]
  - Pyrexia [None]
  - Altered state of consciousness [None]
  - Alanine aminotransferase increased [None]
  - Dyskinesia [None]
  - Akathisia [None]
  - Drug withdrawal syndrome [None]
  - Choreoathetosis [None]
  - Memory impairment [None]
  - Expressive language disorder [None]
  - Executive dysfunction [None]
  - Central nervous system necrosis [None]
  - Hypoxia [None]
  - Toxicity to various agents [None]
  - Extrapyramidal disorder [None]
